FAERS Safety Report 9991516 (Version 1)
Quarter: 2014Q1

REPORT INFORMATION
  Report Type: Spontaneous
  Country: US (occurrence: US)
  Receive Date: 20140310
  Receipt Date: 20140310
  Transmission Date: 20141002
  Serious: Yes (Hospitalization)
  Sender: FDA-Public Use
  Company Number: US-ROXANE LABORATORIES, INC.-2014-RO-00356RO

PATIENT
  Age: 46 Year
  Sex: Female
  Weight: 48 kg

DRUGS (15)
  1. METHADONE [Suspect]
     Indication: BACK PAIN
     Route: 048
     Dates: start: 20120910
  2. METHADONE [Suspect]
     Indication: PELVIC PAIN
  3. CUSTIRSEN [Suspect]
     Indication: CERVIX CARCINOMA
     Route: 042
     Dates: start: 20120924, end: 20121108
  4. PACLITAXEL [Suspect]
     Indication: CERVIX CARCINOMA
     Route: 042
     Dates: start: 20120913
  5. CARBOPLATIN [Suspect]
     Indication: CERVIX CARCINOMA
     Route: 042
     Dates: start: 20120913
  6. HYDROCODONE W/APAP [Suspect]
     Indication: BACK PAIN
     Route: 048
     Dates: start: 20120321
  7. HYDROMORPHONE [Suspect]
     Indication: BACK PAIN
     Route: 048
     Dates: start: 20120901
  8. HYDROMORPHONE [Suspect]
     Indication: PELVIC PAIN
  9. ZOFRAN [Concomitant]
     Indication: NAUSEA
     Dosage: 8 MG
     Route: 048
     Dates: start: 201112
  10. ZOFRAN [Concomitant]
     Indication: VOMITING
  11. METOPROLOL [Concomitant]
     Indication: HYPERTENSION
     Dosage: 400 MG
     Route: 048
     Dates: start: 20120319
  12. DEXAMETHASONE [Concomitant]
     Dosage: 20 MG
     Route: 048
     Dates: start: 20120912
  13. VITAMIN B6 [Concomitant]
     Indication: SUPPLEMENTATION THERAPY
     Dosage: 100 MG
     Route: 048
     Dates: start: 20120910
  14. PHENERGAN [Concomitant]
     Indication: NAUSEA
     Dosage: 25 MG
     Route: 048
     Dates: start: 201112
  15. PHENERGAN [Concomitant]
     Indication: VOMITING

REACTIONS (5)
  - Mental status changes [Recovered/Resolved]
  - Hypokalaemia [Recovered/Resolved]
  - Pyuria [Recovered/Resolved]
  - Bacteriuria [Recovered/Resolved]
  - Hypomagnesaemia [Unknown]
